FAERS Safety Report 16586990 (Version 1)
Quarter: 2019Q3

REPORT INFORMATION
  Report Type: Spontaneous
  Country: FR (occurrence: FR)
  Receive Date: 20190717
  Receipt Date: 20190717
  Transmission Date: 20191004
  Serious: Yes (Life-Threatening)
  Sender: FDA-Public Use
  Company Number: FR-TEVA-2019-FR-1078048

PATIENT
  Age: 89 Year
  Sex: Female
  Weight: 79 kg

DRUGS (9)
  1. APROVEL 150 MG, COMPRIM? [Suspect]
     Active Substance: IRBESARTAN
     Indication: HYPERTENSION
     Dosage: 1 DOSAGE FORM FOR EVERY 1 DAYS
     Route: 048
     Dates: start: 2013, end: 20190602
  2. STAGID 700 MG, COMPRIM? S?CABLE [Suspect]
     Active Substance: METFORMIN PAMOATE
     Indication: TYPE 2 DIABETES MELLITUS
     Dosage: 1 DOSAGE FORM FOR EVERY 1 DAYS
     Route: 048
     Dates: start: 2017, end: 20190602
  3. UVEDOSE [Suspect]
     Active Substance: CHOLECALCIFEROL
     Indication: VITAMIN D DEFICIENCY
     Dosage: 1 DOSAGE FORM FOR EVERY 1 MONTHS
     Route: 048
     Dates: start: 2013, end: 20190602
  4. ROZEX (METRONIDAZOLE) [Suspect]
     Active Substance: METRONIDAZOLE
     Indication: ROSACEA
     Dosage: CURES FOR A FEW DAYS IF NEEDED
     Route: 003
     Dates: end: 20190602
  5. FUROSEMIDE. [Suspect]
     Active Substance: FUROSEMIDE
     Indication: HYPERTENSION
     Dosage: 40 MILLIGRAM FOR EVERY 1 DAYS
     Route: 048
     Dates: start: 2013, end: 20190602
  6. HEMIGOXINE NATIVELLE 0,125 MG, COMPRIM? [Suspect]
     Active Substance: DIGOXIN
     Indication: ATRIAL FIBRILLATION
     Dosage: 1 DOSAGE FORM FOR EVERY 1 DAYS
     Route: 048
     Dates: start: 2013, end: 20190602
  7. ZALDIAR [Suspect]
     Active Substance: ACETAMINOPHEN\TRAMADOL HYDROCHLORIDE
     Indication: PAIN
     Dosage: 1 TO 3 TABLETS IF NEEDED
     Route: 048
     Dates: end: 20190602
  8. PRADAXA [Suspect]
     Active Substance: DABIGATRAN ETEXILATE MESYLATE
     Indication: ATRIAL FIBRILLATION
     Dosage: 2 DOSAGE FORM FOR EVERY 1 DAYS
     Route: 048
     Dates: start: 2013, end: 20190602
  9. ALLOPURINOL. [Suspect]
     Active Substance: ALLOPURINOL
     Indication: GOUT
     Dosage: 100 MILLIGRAM FOR EVERY 1 DAYS
     Route: 048
     Dates: start: 2013, end: 20190602

REACTIONS (3)
  - Haematoma [Recovered/Resolved]
  - Shock haemorrhagic [Recovered/Resolved]
  - Gastrointestinal haemorrhage [Recovered/Resolved]

NARRATIVE: CASE EVENT DATE: 20190602
